FAERS Safety Report 6161166-9 (Version None)
Quarter: 2009Q2

REPORT INFORMATION
  Report Type: 
  Country: None (occurrence: None)
  Receive Date: 20090421
  Receipt Date: 20090409
  Transmission Date: 20091009
  Serious: Yes (Other)
  Sender: FDA-Public Use
  Company Number: US-JNJFOC-20090404310

PATIENT
  Sex: Female

DRUGS (6)
  1. EXTRA STRENGTH TYLENOL [Suspect]
  2. EXTRA STRENGTH TYLENOL [Suspect]
     Indication: PYREXIA
  3. PHENOBARBITAL [Concomitant]
     Indication: CONVULSION
  4. BACTRIM [Concomitant]
     Indication: INFECTION PROPHYLAXIS
  5. ACIPHEX [Concomitant]
     Indication: GASTROOESOPHAGEAL REFLUX DISEASE
  6. MULTI-VITAMINS [Concomitant]

REACTIONS (2)
  - HEPATITIS ACUTE [None]
  - NO REACTION ON PREVIOUS EXPOSURE TO DRUG [None]
